FAERS Safety Report 25416431 (Version 2)
Quarter: 2025Q2

REPORT INFORMATION
  Report Type: Spontaneous
  Country: US (occurrence: US)
  Receive Date: 20250610
  Receipt Date: 20250620
  Transmission Date: 20250717
  Serious: Yes (Hospitalization)
  Sender: TEVA
  Company Number: US-TEVA-VS-3338023

PATIENT
  Age: 17 Year
  Sex: Male

DRUGS (5)
  1. VINCRISTINE [Suspect]
     Active Substance: VINCRISTINE
     Indication: B precursor type acute leukaemia
     Route: 065
  2. PENTAMIDINE [Concomitant]
     Active Substance: PENTAMIDINE
     Indication: Antifungal prophylaxis
     Route: 042
  3. DEXAMETHASONE [Suspect]
     Active Substance: DEXAMETHASONE
     Indication: B precursor type acute leukaemia
     Route: 065
  4. MERCAPTOPURINE [Suspect]
     Active Substance: MERCAPTOPURINE
     Indication: B precursor type acute leukaemia
     Route: 065
  5. COTRIMOXAZOLE [Suspect]
     Active Substance: SULFAMETHOXAZOLE\TRIMETHOPRIM
     Indication: Antifungal prophylaxis
     Route: 048

REACTIONS (2)
  - Pneumonia toxoplasmal [Recovered/Resolved]
  - Treatment noncompliance [Unknown]
